FAERS Safety Report 20688385 (Version 1)
Quarter: 2022Q2

REPORT INFORMATION
  Report Type: Spontaneous
  Country: IR (occurrence: IR)
  Receive Date: 20220408
  Receipt Date: 20220408
  Transmission Date: 20220721
  Serious: Yes (Other)
  Sender: FDA-Public Use
  Company Number: IR-MACLEODS PHARMACEUTICALS US LTD-MAC2022035136

PATIENT

DRUGS (1)
  1. LIDOCAINE [Suspect]
     Active Substance: LIDOCAINE
     Indication: Local anaesthesia
     Dosage: UNK, SPRAY USED AS INJECTABLE
     Route: 065

REACTIONS (3)
  - Osteomyelitis [Recovered/Resolved]
  - Osteonecrosis [Recovered/Resolved]
  - Incorrect product formulation administered [Recovered/Resolved]
